FAERS Safety Report 6107657-8 (Version None)
Quarter: 2009Q1

REPORT INFORMATION
  Report Type: 
  Country: None (occurrence: None)
  Receive Date: 20090302
  Receipt Date: 20080612
  Transmission Date: 20090719
  Serious: Yes (Disabling, Other)
  Sender: FDA-Public Use
  Company Number: ALA_00080_2008

PATIENT
  Sex: Female

DRUGS (2)
  1. REGLAN [Suspect]
     Indication: DIABETIC GASTROPARESIS
     Dosage: (5 MG BID), (10 MG QID)
     Dates: end: 20050301
  2. REGLAN [Suspect]
     Indication: DIABETIC GASTROPARESIS
     Dosage: (5 MG BID), (10 MG QID)
     Dates: start: 20010323

REACTIONS (1)
  - TARDIVE DYSKINESIA [None]
